FAERS Safety Report 16180570 (Version 1)
Quarter: 2019Q2

REPORT INFORMATION
  Report Type: Report from Study
  Country: US (occurrence: US)
  Receive Date: 20190410
  Receipt Date: 20190410
  Transmission Date: 20190711
  Serious: Yes (Hospitalization, Other)
  Sender: FDA-Public Use
  Company Number: US-SA-2019SA095439

PATIENT
  Age: 67 Year
  Sex: Male

DRUGS (1)
  1. INSULIN GLARGINE [Suspect]
     Active Substance: INSULIN GLARGINE
     Indication: DIABETES MELLITUS
     Dosage: 35 U, QD
     Route: 058

REACTIONS (5)
  - Hospitalisation [Unknown]
  - Visual impairment [Unknown]
  - Dementia [Unknown]
  - Diabetes mellitus [Unknown]
  - General physical condition decreased [Not Recovered/Not Resolved]

NARRATIVE: CASE EVENT DATE: 20190328
